FAERS Safety Report 7206892-5 (Version None)
Quarter: 2010Q4

REPORT INFORMATION
  Report Type: 
  Country: None (occurrence: None)
  Receive Date: 20101217
  Receipt Date: 20100713
  Transmission Date: 20110411
  Serious: No
  Sender: FDA-Public Use
  Company Number: 010156

PATIENT
  Age: 77 Year
  Sex: Female

DRUGS (9)
  1. PLETAL [Suspect]
     Dosage: ORAL
     Route: 048
     Dates: end: 20100629
  2. ASPIRIN [Concomitant]
  3. PARIET (SODIUM RABEPRAZOLE) TABLET [Concomitant]
  4. LIPITOR [Concomitant]
  5. SIGMART (NICORANDIL) [Concomitant]
  6. NIFEDIPINE [Concomitant]
  7. DIOVAN [Concomitant]
  8. METHYCOBAL (MECOBALAMIN) [Concomitant]
  9. KINEDAK (EPALRESTAT) TABLET [Concomitant]

REACTIONS (3)
  - AGRANULOCYTOSIS [None]
  - LEUKAEMIA [None]
  - THROMBOCYTOPENIA [None]
